FAERS Safety Report 12631205 (Version 2)
Quarter: 2016Q3

REPORT INFORMATION
  Report Type: Spontaneous
  Country: US (occurrence: US)
  Receive Date: 20160808
  Receipt Date: 20160808
  Transmission Date: 20161109
  Serious: No
  Sender: FDA-Public Use
  Company Number: US-BEH-2015052782

PATIENT
  Sex: Male
  Weight: 12 kg

DRUGS (15)
  1. ACETAMINOPHEN. [Concomitant]
     Active Substance: ACETAMINOPHEN
  2. CALCITROL [Concomitant]
     Active Substance: CALCITRIOL
  3. D-VI-SOL [Concomitant]
  4. FERROUS SULFATE. [Concomitant]
     Active Substance: FERROUS SULFATE
  5. HIZENTRA [Suspect]
     Active Substance: HUMAN IMMUNOGLOBULIN G
     Indication: HYPER IGM SYNDROME
     Dosage: 2 GM 10 ML VIAL
     Route: 058
  6. MAGNESIUM [Concomitant]
     Active Substance: MAGNESIUM
  7. XOPENEX [Concomitant]
     Active Substance: LEVALBUTEROL HYDROCHLORIDE
  8. DIPHENHYDRAMINE. [Concomitant]
     Active Substance: DIPHENHYDRAMINE
  9. EPIPEN [Concomitant]
     Active Substance: EPINEPHRINE
     Indication: ANAPHYLACTIC REACTION
  10. ASPIRIN. [Concomitant]
     Active Substance: ASPIRIN
  11. LIDOCAINE. [Concomitant]
     Active Substance: LIDOCAINE
  12. FLONASE [Concomitant]
     Active Substance: FLUTICASONE PROPIONATE
  13. ALVESCO [Concomitant]
     Active Substance: CICLESONIDE
  14. CALCIUM [Concomitant]
     Active Substance: CALCIUM
  15. MONTELUKAST [Concomitant]
     Active Substance: MONTELUKAST SODIUM

REACTIONS (1)
  - Body temperature increased [Unknown]
